FAERS Safety Report 25147511 (Version 1)
Quarter: 2025Q2

REPORT INFORMATION
  Report Type: Spontaneous
  Country: FR (occurrence: FR)
  Receive Date: 20250402
  Receipt Date: 20250402
  Transmission Date: 20250717
  Serious: Yes (Other)
  Sender: NOVO NORDISK
  Company Number: FR-NOVOPROD-1395790

PATIENT
  Age: 53 Year
  Sex: Female

DRUGS (4)
  1. OZEMPIC [Suspect]
     Active Substance: SEMAGLUTIDE
     Indication: Diabetes mellitus
     Dates: start: 20250102
  2. OZEMPIC [Suspect]
     Active Substance: SEMAGLUTIDE
     Indication: Diabetes mellitus
  3. OZEMPIC [Suspect]
     Active Substance: SEMAGLUTIDE
     Indication: Diabetes mellitus
     Dates: end: 20250309
  4. METFORMIN [Concomitant]
     Active Substance: METFORMIN HYDROCHLORIDE
     Indication: Product used for unknown indication

REACTIONS (11)
  - Alanine aminotransferase increased [Recovering/Resolving]
  - Breath odour [Unknown]
  - Hypertension [Unknown]
  - Blood pressure decreased [Unknown]
  - Blood glucose abnormal [Unknown]
  - Asthenia [Unknown]
  - Diarrhoea [Unknown]
  - Eructation [Unknown]
  - Abdominal distension [Unknown]
  - Abdominal pain upper [Unknown]
  - Dizziness [Unknown]

NARRATIVE: CASE EVENT DATE: 20230401
